FAERS Safety Report 6013936-5 (Version None)
Quarter: 2008Q4

REPORT INFORMATION
  Report Type: 
  Country: None (occurrence: None)
  Receive Date: 20081219
  Receipt Date: 20081210
  Transmission Date: 20090506
  Serious: Yes (Hospitalization, Other)
  Sender: FDA-Public Use
  Company Number: US-MERCK-0803USA04540

PATIENT
  Age: 34 Year
  Sex: Female

DRUGS (3)
  1. FOSAMAX [Suspect]
     Indication: OSTEOPOROSIS
     Route: 048
     Dates: start: 19990101, end: 20000613
  2. FOSAMAX [Suspect]
     Route: 048
     Dates: end: 20060726
  3. [THERAPY UNSPECIFIED] [Concomitant]
     Indication: BLOOD CHOLESTEROL INCREASED
     Route: 065
     Dates: start: 19970101

REACTIONS (67)
  - ABDOMINAL INJURY [None]
  - ABDOMINAL PAIN [None]
  - ACUTE SINUSITIS [None]
  - AMNESIA [None]
  - ANAEMIA [None]
  - ANTIPSYCHOTIC DRUG LEVEL INCREASED [None]
  - ANXIETY [None]
  - ATROPHY [None]
  - BIPOLAR DISORDER [None]
  - BREAST MASS [None]
  - BRONCHITIS [None]
  - CHEST INJURY [None]
  - CHEST PAIN [None]
  - CHRONIC HEPATITIS [None]
  - CONVULSION [None]
  - DEEP VEIN THROMBOSIS [None]
  - DENTAL CARIES [None]
  - DEPRESSION [None]
  - DRUG DEPENDENCE [None]
  - DRUG HYPERSENSITIVITY [None]
  - DRUG INTOLERANCE [None]
  - DYSGEUSIA [None]
  - ECHOCARDIOGRAM ABNORMAL [None]
  - EXCORIATION [None]
  - EXOSTOSIS [None]
  - FAILURE TO THRIVE [None]
  - GALLBLADDER DISORDER [None]
  - GAMMA-GLUTAMYLTRANSFERASE INCREASED [None]
  - HEAD INJURY [None]
  - HOMICIDAL IDEATION [None]
  - HYPERLIPIDAEMIA [None]
  - HYPERTENSION [None]
  - HYPOGLYCAEMIA [None]
  - INFECTION [None]
  - INSOMNIA [None]
  - JAW DISORDER [None]
  - LOSS OF CONSCIOUSNESS [None]
  - LYMPHADENOPATHY [None]
  - MENTAL DISORDER [None]
  - MICROGNATHIA [None]
  - MUSCULOSKELETAL DISORDER [None]
  - NASAL SEPTUM DEVIATION [None]
  - OSTEONECROSIS [None]
  - OVERDOSE [None]
  - PAIN [None]
  - PAIN IN JAW [None]
  - PALPITATIONS [None]
  - PANCREATITIS ACUTE [None]
  - PANCREATITIS CHRONIC [None]
  - POOR DENTAL CONDITION [None]
  - RELAPSING FEVER [None]
  - ROAD TRAFFIC ACCIDENT [None]
  - SIALOADENITIS [None]
  - SKELETAL INJURY [None]
  - SLEEP APNOEA SYNDROME [None]
  - SPINAL FRACTURE [None]
  - STERNAL FRACTURE [None]
  - SUBSTANCE ABUSE [None]
  - SUICIDAL IDEATION [None]
  - SYNOVITIS [None]
  - TOOTH ABSCESS [None]
  - TOOTH FRACTURE [None]
  - TOOTHACHE [None]
  - TYPE 1 DIABETES MELLITUS [None]
  - UPPER LIMB FRACTURE [None]
  - UPPER RESPIRATORY TRACT INFECTION [None]
  - WEIGHT DECREASED [None]
